FAERS Safety Report 7845545-7 (Version None)
Quarter: 2011Q4

REPORT INFORMATION
  Report Type: 
  Country: None (occurrence: None)
  Receive Date: 20111018
  Receipt Date: 20111003
  Transmission Date: 20120403
  Serious: Yes (Hospitalization)
  Sender: FDA-Public Use
  Company Number: 2011SP046152

PATIENT
  Age: 51 Year
  Sex: Female
  Weight: 49.4 kg

DRUGS (28)
  1. SELBEX [Concomitant]
  2. RIBAVIRIN [Suspect]
     Indication: HEPATITIS C
     Dosage: 300 MG;BID
     Dates: start: 20110922, end: 20110922
  3. RIBAVIRIN [Suspect]
     Indication: HEPATITIS C
     Dosage: 300 MG;BID
     Dates: start: 20110915, end: 20110915
  4. RIBAVIRIN [Suspect]
     Indication: HEPATITIS C
     Dosage: 300 MG;BID
     Dates: start: 20110918, end: 20110918
  5. RIBAVIRIN [Suspect]
     Indication: HEPATITIS C
     Dosage: 300 MG;BID
     Dates: start: 20110918, end: 20110918
  6. RIBAVIRIN [Suspect]
     Indication: HEPATITIS C
     Dosage: 300 MG;BID
     Dates: start: 20110917, end: 20110917
  7. RIBAVIRIN [Suspect]
     Indication: HEPATITIS C
     Dosage: 300 MG;BID
     Dates: start: 20110919, end: 20110919
  8. RIBAVIRIN [Suspect]
     Indication: HEPATITIS C
     Dosage: 300 MG;BID
     Dates: start: 20110920, end: 20110920
  9. RIBAVIRIN [Suspect]
     Indication: HEPATITIS C
     Dosage: 300 MG;BID
     Dates: start: 20110915, end: 20110915
  10. RIBAVIRIN [Suspect]
     Indication: HEPATITIS C
     Dosage: 300 MG;BID
     Dates: start: 20110916, end: 20110916
  11. RIBAVIRIN [Suspect]
     Indication: HEPATITIS C
     Dosage: 300 MG;BID
     Dates: start: 20110921, end: 20110921
  12. RIBAVIRIN [Suspect]
     Indication: HEPATITIS C
     Dosage: 300 MG;BID
     Dates: start: 20110917, end: 20110917
  13. RIBAVIRIN [Suspect]
     Indication: HEPATITIS C
     Dosage: 300 MG;BID
     Dates: start: 20110921, end: 20110921
  14. RIBAVIRIN [Suspect]
     Indication: HEPATITIS C
     Dosage: 300 MG;BID
     Dates: start: 20110916, end: 20110916
  15. RIBAVIRIN [Suspect]
     Indication: HEPATITIS C
     Dosage: 300 MG;BID
     Dates: start: 20110919, end: 20110919
  16. RIBAVIRIN [Suspect]
     Indication: HEPATITIS C
     Dosage: 300 MG;BID
     Dates: start: 20110920, end: 20110920
  17. PEGINTERFERON ALFA-2B [Suspect]
     Indication: HEPATITIS C
     Dosage: 300 MG;BID
     Dates: start: 20110915, end: 20110928
  18. PEGINTERFERON ALFA-2B [Suspect]
     Indication: HEPATITIS C
     Dosage: 300 MG;BID
     Dates: start: 20110915, end: 20110927
  19. PRIMPERAN /0041901/ [Concomitant]
  20. ENSURE /00472201/ [Concomitant]
  21. AMLODIPINE [Concomitant]
  22. GASTER /00661201/ [Concomitant]
  23. MIYA-BM [Concomitant]
  24. POTASSIUM CHLORIDE [Concomitant]
  25. PEG-INTRON [Suspect]
     Indication: HEPATITIS C
     Dosage: 80 MCG;QW ; 80 MCG;QW
     Dates: start: 20110915, end: 20110915
  26. PEG-INTRON [Suspect]
     Indication: HEPATITIS C
     Dosage: 80 MCG;QW ; 80 MCG;QW
     Dates: start: 20110922, end: 20110922
  27. ADOFEED [Concomitant]
  28. ACETAMINOPHEN [Concomitant]

REACTIONS (4)
  - HYPONATRAEMIA [None]
  - NAUSEA [None]
  - VOMITING [None]
  - DECREASED APPETITE [None]
